FAERS Safety Report 26191623 (Version 1)
Quarter: 2025Q4

REPORT INFORMATION
  Report Type: Report from Study
  Country: US (occurrence: US)
  Receive Date: 20251223
  Receipt Date: 20251223
  Transmission Date: 20260117
  Serious: Yes (Hospitalization)
  Sender: JAZZ
  Company Number: US-JAZZ PHARMACEUTICALS-2025-US-027682

PATIENT
  Age: 40 Year
  Sex: Male

DRUGS (2)
  1. EPIDIOLEX [Suspect]
     Active Substance: CANNABIDIOL
     Indication: Altered state of consciousness
     Dosage: 3.3 MILLILITER, BID
     Dates: start: 202503
  2. EPIDIOLEX [Suspect]
     Active Substance: CANNABIDIOL
     Indication: Epilepsy
     Dosage: 5.5 MILLILITER, BID
     Dates: start: 202503

REACTIONS (4)
  - Hospitalisation [Unknown]
  - Headache [Unknown]
  - Product administration interrupted [Recovering/Resolving]
  - Off label use [Unknown]

NARRATIVE: CASE EVENT DATE: 20251101
